FAERS Safety Report 14362484 (Version 1)
Quarter: 2018Q1

REPORT INFORMATION
  Report Type: Spontaneous
  Country: NL (occurrence: NL)
  Receive Date: 20180108
  Receipt Date: 20180108
  Transmission Date: 20180509
  Serious: Yes (Hospitalization)
  Sender: FDA-Public Use
  Company Number: NL-TEVA-2018-NL-844440

PATIENT
  Age: 63 Year
  Sex: Female

DRUGS (8)
  1. GEMCITABINE [Suspect]
     Active Substance: GEMCITABINE\GEMCITABINE HYDROCHLORIDE
     Dosage: 1800MG 2 X PER 4WEEKS
     Route: 042
     Dates: start: 20150105, end: 20150507
  2. ABRAXANE [Suspect]
     Active Substance: PACLITAXEL
     Indication: PANCREATIC CARCINOMA
     Dosage: 170MG 3 X PER 4 WEEKS
     Route: 042
     Dates: start: 20140818
  3. OXYNORM [Suspect]
     Active Substance: OXYCODONE HYDROCHLORIDE
     Indication: ABDOMINAL PAIN
     Dosage: 5 MG, BID
     Route: 065
     Dates: start: 20150424
  4. MOVICOLON [Concomitant]
     Active Substance: POLYETHYLENE GLYCOL 3350\POTASSIUM CHLORIDE\SODIUM BICARBONATE\SODIUM CHLORIDE
     Dosage: UNK
     Dates: start: 20150424
  5. GEMCITABINE [Suspect]
     Active Substance: GEMCITABINE\GEMCITABINE HYDROCHLORIDE
     Indication: PANCREATIC CARCINOMA
     Dosage: 1800MG 3 X PER 4 WEEK
     Route: 042
     Dates: start: 20140512
  6. ABRAXANE [Suspect]
     Active Substance: PACLITAXEL
     Dosage: 230MG 3 X PER 4 WEEKS
     Route: 042
     Dates: start: 20140512
  7. ABRAXANE [Suspect]
     Active Substance: PACLITAXEL
     Dosage: 170MG 3 X PER 4 WEEKS
     Route: 042
     Dates: start: 20150105, end: 20150507
  8. NOVALGIN (METAMIZOLE SODIUM) [Suspect]
     Active Substance: METAMIZOLE SODIUM
     Indication: ABDOMINAL PAIN
     Dosage: 500 MG, TID
     Route: 065
     Dates: start: 20150507, end: 20150510

REACTIONS (4)
  - Vomiting [Unknown]
  - Dizziness [Unknown]
  - Constipation [Not Recovered/Not Resolved]
  - Nausea [Unknown]

NARRATIVE: CASE EVENT DATE: 20150508
